FAERS Safety Report 6587975-X (Version None)
Quarter: 2010Q2

REPORT INFORMATION
  Report Type: 
  Country: None (occurrence: None)
  Receive Date: 20100218
  Receipt Date: 20100209
  Transmission Date: 20101027
  Serious: Yes (Death, Hospitalization, Other)
  Sender: FDA-Public Use
  Company Number: JP-BRISTOL-MYERS SQUIBB COMPANY-14951131

PATIENT
  Age: 48 Year
  Sex: Male

DRUGS (8)
  1. STAVUDINE [Suspect]
     Indication: ACQUIRED IMMUNODEFICIENCY SYNDROME
     Route: 048
  2. SULFAMETHOXAZOLE AND TRIMETHOPRIM [Suspect]
     Indication: PROPHYLAXIS
     Route: 048
  3. CISPLATIN [Suspect]
     Indication: SEMINOMA
     Dosage: ON DAYS 1 TO 5, CONTINUOUS INFUSION
     Route: 041
     Dates: start: 20050301
  4. BLEOMYCIN HCL [Suspect]
     Indication: SEMINOMA
     Dosage: 1 DOSAGEFORM = 30MG/BODY FORM = INJ ON DAYS 2, 9, 16
     Route: 042
     Dates: start: 20050301
  5. ETOPOSIDE [Suspect]
     Indication: SEMINOMA
     Dosage: ON DAYS 1-5
     Dates: start: 20050301
  6. LOPINAVIR/RITONAVIR [Suspect]
     Indication: ACQUIRED IMMUNODEFICIENCY SYNDROME
     Route: 048
  7. LAMIVUDINE [Suspect]
     Indication: ACQUIRED IMMUNODEFICIENCY SYNDROME
     Dosage: FORM = TABS
     Route: 048
  8. FLUCONAZOLE [Suspect]
     Indication: PROPHYLAXIS

REACTIONS (7)
  - BONE MARROW FAILURE [None]
  - GASTRIC ULCER HAEMORRHAGE [None]
  - NAUSEA [None]
  - PNEUMOCYSTIS JIROVECI PNEUMONIA [None]
  - RENAL FAILURE ACUTE [None]
  - RESPIRATORY FAILURE [None]
  - SEMINOMA [None]
